FAERS Safety Report 4919813-2 (Version None)
Quarter: 2006Q1

REPORT INFORMATION
  Report Type: 
  Country: None (occurrence: None)
  Receive Date: 20060216
  Receipt Date: 20060130
  Transmission Date: 20060701
  Serious: Yes (Hospitalization)
  Sender: FDA-Public Use
  Company Number: DE200601005358

PATIENT
  Age: 86 Year
  Sex: Female
  Weight: 48 kg

DRUGS (4)
  1. TERIPARATIDE (TERIPARATIDE) PEN, DISPOSABLE [Suspect]
     Indication: OSTEOPOROSIS
     Dosage: 20 ?G, DAILY (1/D), SUBCUTANEOUS
     Route: 058
     Dates: start: 20050418, end: 20050512
  2. FORTEO PEN  (FOETEO PEN) [Concomitant]
  3. ... [Concomitant]
  4. DUROGESIC / DEN/ (FENTANYL) [Concomitant]

REACTIONS (5)
  - FALL [None]
  - HAEMATOMA [None]
  - OVERDOSE [None]
  - SKIN LACERATION [None]
  - SYNCOPE VASOVAGAL [None]
